FAERS Safety Report 7151926-X (Version None)
Quarter: 2010Q4

REPORT INFORMATION
  Report Type: 
  Country: None (occurrence: None)
  Receive Date: 20101210
  Receipt Date: 20101203
  Transmission Date: 20110411
  Serious: Yes (Hospitalization, Other)
  Sender: FDA-Public Use
  Company Number: US-MERCK-0805USA00446

PATIENT
  Age: 69 Year
  Sex: Female
  Weight: 82 kg

DRUGS (2)
  1. FOSAMAX [Suspect]
     Indication: MALAISE
     Route: 048
     Dates: end: 20060101
  2. FOSAMAX [Suspect]
     Indication: OSTEOPOROSIS
     Route: 048
     Dates: end: 20060101

REACTIONS (48)
  - ANXIETY [None]
  - ARTHRALGIA [None]
  - ARTHRITIS [None]
  - ASTHENIA [None]
  - BACK PAIN [None]
  - BENIGN BREAST NEOPLASM [None]
  - BLOOD PRESSURE FLUCTUATION [None]
  - BLOOD PRESSURE INCREASED [None]
  - BRONCHITIS [None]
  - CAROTID ARTERY OCCLUSION [None]
  - CATARACT [None]
  - CELLULITIS [None]
  - CERUMEN IMPACTION [None]
  - CONTUSION [None]
  - CORONARY ARTERY DISEASE [None]
  - EPICONDYLITIS [None]
  - EYE DISORDER [None]
  - FALL [None]
  - FIBROMYALGIA [None]
  - GASTROINTESTINAL DISORDER [None]
  - HERPES ZOSTER [None]
  - HYPERCHOLESTEROLAEMIA [None]
  - HYPERLIPIDAEMIA [None]
  - HYPERTENSION [None]
  - IMPAIRED HEALING [None]
  - IRON DEFICIENCY ANAEMIA [None]
  - LACUNAR INFARCTION [None]
  - MUSCULOSKELETAL DISCOMFORT [None]
  - NEUROPATHY PERIPHERAL [None]
  - OSTEOMYELITIS [None]
  - OSTEONECROSIS OF JAW [None]
  - PAIN [None]
  - PAIN IN JAW [None]
  - PERIODONTITIS [None]
  - PERIORBITAL HAEMATOMA [None]
  - PERIPHERAL VASCULAR DISORDER [None]
  - PNEUMONIA LEGIONELLA [None]
  - RASH [None]
  - RENAL CYST [None]
  - RETINAL DEGENERATION [None]
  - RETINAL DETACHMENT [None]
  - SCIATICA [None]
  - SKIN LESION [None]
  - SKIN ULCER [None]
  - SWELLING [None]
  - SYNOVIAL CYST [None]
  - TEMPOROMANDIBULAR JOINT SYNDROME [None]
  - WEIGHT DECREASED [None]
